FAERS Safety Report 6870703-8 (Version None)
Quarter: 2010Q3

REPORT INFORMATION
  Report Type: 
  Country: None (occurrence: None)
  Receive Date: 20100723
  Receipt Date: 20091113
  Transmission Date: 20110219
  Serious: No
  Sender: FDA-Public Use
  Company Number: A0835707A

PATIENT
  Age: 59 Year
  Sex: Female

DRUGS (2)
  1. OLUX [Suspect]
     Indication: ECZEMA
     Route: 061
     Dates: start: 20090815
  2. FOSAMAX [Concomitant]
     Indication: OSTEOPENIA

REACTIONS (5)
  - ALOPECIA [None]
  - BURNING SENSATION [None]
  - ERYTHEMA [None]
  - FOLLICULITIS [None]
  - PRURITUS [None]
